FAERS Safety Report 11198377 (Version 1)
Quarter: 2015Q2

REPORT INFORMATION
  Report Type: Spontaneous
  Country: None (occurrence: None)
  Receive Date: 20150615
  Receipt Date: 20150615
  Transmission Date: 20150821
  Serious: No
  Sender: FDA-Public Use
  Company Number: None

PATIENT
  Age: 65 Year
  Sex: Male
  Weight: 90.72 kg

DRUGS (3)
  1. MULTI-VITAMIN SUPPLEMENT [Concomitant]
     Active Substance: VITAMINS
  2. AMLODIPINE BESYLATE 5 MG GREENSTONE LT [Suspect]
     Active Substance: AMLODIPINE BESYLATE
     Indication: HYPERTENSION
     Route: 048
     Dates: start: 20150610, end: 20150612
  3. LYSINOPRIL [Concomitant]

REACTIONS (8)
  - Dissociation [None]
  - Feeling of body temperature change [None]
  - Hallucination [None]
  - Diplopia [None]
  - Nausea [None]
  - Hyperhidrosis [None]
  - Dizziness [None]
  - Vision blurred [None]

NARRATIVE: CASE EVENT DATE: 20150612
